FAERS Safety Report 9056803 (Version 2)
Quarter: 2013Q1

REPORT INFORMATION
  Report Type: Spontaneous
  Country: ES (occurrence: ES)
  Receive Date: 20130201
  Receipt Date: 20130225
  Transmission Date: 20140127
  Serious: Yes (Hospitalization)
  Sender: FDA-Public Use
  Company Number: ES-GLAXOSMITHKLINE-B0862629A

PATIENT
  Age: 54 None
  Sex: Female

DRUGS (2)
  1. BENLYSTA [Suspect]
     Indication: SYSTEMIC LUPUS ERYTHEMATOSUS
     Route: 065
     Dates: start: 20121114, end: 20121114
  2. BENLYSTA [Suspect]
     Indication: SKIN LESION
     Route: 065
     Dates: start: 20121129, end: 20121129

REACTIONS (6)
  - Sepsis [Not Recovered/Not Resolved]
  - Cardiac valve rupture [Unknown]
  - Endocarditis [Unknown]
  - Immunosuppression [Unknown]
  - Pyrexia [Unknown]
  - Streptococcal infection [Unknown]
